FAERS Safety Report 13634223 (Version 1)
Quarter: 2017Q2

REPORT INFORMATION
  Report Type: Spontaneous
  Country: GB (occurrence: GB)
  Receive Date: 20170609
  Receipt Date: 20170609
  Transmission Date: 20170830
  Serious: Yes (Life-Threatening, Other)
  Sender: FDA-Public Use
  Company Number: GB-SUN PHARMACEUTICAL INDUSTRIES LTD-2017R1-142719

PATIENT
  Age: 12 Year
  Sex: Male

DRUGS (4)
  1. DAUNORUBICIN [Suspect]
     Active Substance: DAUNORUBICIN
     Indication: ACUTE LYMPHOCYTIC LEUKAEMIA
     Dosage: 25 MG/M2, 1 CYCLE
     Route: 065
  2. VINCRISTINE [Suspect]
     Active Substance: VINCRISTINE
     Indication: ACUTE LYMPHOCYTIC LEUKAEMIA
     Dosage: 1.5 MG/M2, 1 CYCLE
     Route: 065
  3. DEXAMETHASONE. [Suspect]
     Active Substance: DEXAMETHASONE
     Indication: ACUTE LYMPHOCYTIC LEUKAEMIA
     Dosage: 25 MG/M2, 1 CYCLE
     Route: 065
  4. ASPARAGINASE\POLYETHYLENE GLYCOL [Suspect]
     Active Substance: ASPARAGINASE\POLYETHYLENE GLYCOLS
     Indication: ACUTE LYMPHOCYTIC LEUKAEMIA
     Dosage: 1,000 U/M2 CYCLICAL
     Route: 065

REACTIONS (2)
  - Cholecystitis acute [Recovered/Resolved]
  - Neutropenia [Recovered/Resolved]
